FAERS Safety Report 22926136 (Version 3)
Quarter: 2023Q4

REPORT INFORMATION
  Report Type: Spontaneous
  Country: GB (occurrence: GB)
  Receive Date: 20230909
  Receipt Date: 20231011
  Transmission Date: 20240109
  Serious: Yes (Other)
  Sender: FDA-Public Use
  Company Number: GB-GRUNENTHAL-2023-272130

PATIENT
  Age: 38 Year
  Sex: Female

DRUGS (7)
  1. TRAMADOL [Suspect]
     Active Substance: TRAMADOL\TRAMADOL HYDROCHLORIDE
     Indication: Product used for unknown indication
     Dosage: UNK
     Route: 065
  2. LIDOCAINE HYDROCHLORIDE [Suspect]
     Active Substance: LIDOCAINE HYDROCHLORIDE
     Indication: Muscle spasms
     Dosage: UNK
     Route: 061
     Dates: start: 20230721, end: 20230722
  3. LIDOCAINE HYDROCHLORIDE [Suspect]
     Active Substance: LIDOCAINE HYDROCHLORIDE
     Indication: Muscle strain
  4. DULOXETINE [Concomitant]
     Active Substance: DULOXETINE
     Indication: Anxiety
     Dosage: UNK
     Route: 065
  5. DULOXETINE [Concomitant]
     Active Substance: DULOXETINE
     Dosage: UNK
     Route: 065
  6. IBUPROFEN [Concomitant]
     Active Substance: IBUPROFEN
     Indication: Fibromyalgia
     Dosage: AS NECESSARY
     Route: 065
  7. ACETAMINOPHEN [Concomitant]
     Active Substance: ACETAMINOPHEN
     Indication: Fibromyalgia
     Dosage: AS NECESSARY
     Route: 065

REACTIONS (5)
  - Second degree chemical burn of skin [Recovering/Resolving]
  - Hypersensitivity [Unknown]
  - Drug hypersensitivity [Unknown]
  - Back injury [Unknown]
  - Application site burn [Recovering/Resolving]

NARRATIVE: CASE EVENT DATE: 20230722
